FAERS Safety Report 24877448 (Version 2)
Quarter: 2025Q2

REPORT INFORMATION
  Report Type: Spontaneous
  Country: US (occurrence: US)
  Receive Date: 20250123
  Receipt Date: 20250609
  Transmission Date: 20250716
  Serious: No
  Sender: ALEXION PHARMACEUTICALS
  Company Number: US-AstraZeneca-CH-00790189AP

PATIENT
  Age: 68 Year

DRUGS (1)
  1. SYMBICORT [Suspect]
     Active Substance: BUDESONIDE\FORMOTEROL FUMARATE DIHYDRATE
     Indication: Respiratory disorder
     Dosage: 80 MICROGRAM, BID
     Route: 065

REACTIONS (2)
  - Device delivery system issue [Unknown]
  - Product dose omission issue [Unknown]
